FAERS Safety Report 11906632 (Version 1)
Quarter: 2016Q1

REPORT INFORMATION
  Report Type: Spontaneous
  Country: US (occurrence: None)
  Receive Date: 20160108
  Receipt Date: 20160108
  Transmission Date: 20160526
  Serious: No
  Sender: FDA-Public Use
  Company Number: None

PATIENT
  Age: 47 Year
  Sex: Female

DRUGS (4)
  1. IBRANCE [Suspect]
     Active Substance: PALBOCICLIB
     Indication: BREAST CANCER
     Dosage: ( 1 PILL)
     Route: 048
     Dates: start: 20151202
  2. VITAMIN E [Concomitant]
     Active Substance: .ALPHA.-TOCOPHEROL
  3. XGEVA [Concomitant]
     Active Substance: DENOSUMAB
  4. FEMARA [Concomitant]
     Active Substance: LETROZOLE

REACTIONS (5)
  - White blood cell count decreased [None]
  - Stomatitis [None]
  - Alopecia [None]
  - Confusional state [None]
  - Tenderness [None]

NARRATIVE: CASE EVENT DATE: 201512
